FAERS Safety Report 15888570 (Version 2)
Quarter: 2019Q1

REPORT INFORMATION
  Report Type: Spontaneous
  Country: NL (occurrence: NL)
  Receive Date: 20190130
  Receipt Date: 20190211
  Transmission Date: 20190417
  Serious: Yes (Life-Threatening, Hospitalization)
  Sender: FDA-Public Use
  Company Number: NL-TEVA-2019-NL-1003261

PATIENT
  Age: 51 Year
  Sex: Female

DRUGS (4)
  1. AMLODIPINE [Suspect]
     Active Substance: AMLODIPINE BESYLATE
     Indication: SUICIDE ATTEMPT
     Dosage: INGESTED 30
     Route: 048
  2. PERINDOPRIL/INDAPAMIDE [Suspect]
     Active Substance: INDAPAMIDE\PERINDOPRIL
     Indication: OVERDOSE
  3. AMLODIPINE [Suspect]
     Active Substance: AMLODIPINE BESYLATE
     Indication: OVERDOSE
  4. PERINDOPRIL/INDAPAMIDE [Suspect]
     Active Substance: INDAPAMIDE\PERINDOPRIL
     Indication: SUICIDE ATTEMPT
     Dosage: INGESTED 80 TABLETS; INDAPAMIDE: 1.25 MG; PERINDOPRIL: 4 MG;
     Route: 048

REACTIONS (9)
  - Suicide attempt [Recovering/Resolving]
  - Bradycardia [Recovering/Resolving]
  - Toxicity to various agents [Recovering/Resolving]
  - Anuria [Recovering/Resolving]
  - Shock [Recovering/Resolving]
  - Cardiogenic shock [Recovering/Resolving]
  - Metabolic acidosis [Recovering/Resolving]
  - Distributive shock [Recovering/Resolving]
  - Intentional overdose [Unknown]
